FAERS Safety Report 25245652 (Version 1)
Quarter: 2025Q2

REPORT INFORMATION
  Report Type: Spontaneous
  Country: FR (occurrence: FR)
  Receive Date: 20250428
  Receipt Date: 20250428
  Transmission Date: 20250716
  Serious: Yes (Other)
  Sender: FRESENIUS KABI
  Company Number: None

PATIENT
  Age: 56 Year
  Sex: Male
  Weight: 76 kg

DRUGS (5)
  1. PIPERACILLIN SODIUM\TAZOBACTAM SODIUM [Suspect]
     Active Substance: PIPERACILLIN SODIUM\TAZOBACTAM SODIUM
     Indication: Pleurisy
     Route: 042
     Dates: start: 20241001, end: 20241025
  2. FLUCONAZOLE [Suspect]
     Active Substance: FLUCONAZOLE
     Indication: Pleurisy
     Route: 042
     Dates: start: 20241005, end: 20241025
  3. ERYTHROMYCIN LACTOBIONATE [Suspect]
     Active Substance: ERYTHROMYCIN LACTOBIONATE
     Indication: Intestinal transit time increased
     Route: 042
     Dates: start: 20241016, end: 20241026
  4. PANTOPRAZOLE SUN 40 mg, powder for solution for injection [PANTOPRAZOL [Concomitant]
     Indication: Oesophagectomy
     Route: 042
     Dates: start: 20240925, end: 20241030
  5. LOVENOX 4000 UI anti-Xa/0.4 ml, solution for injection in pre-filled s [Concomitant]
     Indication: Thrombosis prophylaxis
     Route: 058
     Dates: start: 20240925

REACTIONS (1)
  - Agranulocytosis [Recovered/Resolved]

NARRATIVE: CASE EVENT DATE: 20241023
